FAERS Safety Report 12630140 (Version 1)
Quarter: 2016Q3

REPORT INFORMATION
  Report Type: Report from Study
  Country: GB (occurrence: GB)
  Receive Date: 20160808
  Receipt Date: 20160808
  Transmission Date: 20161109
  Serious: Yes (Hospitalization, Other)
  Sender: FDA-Public Use
  Company Number: GB-NOVOPROD-501225

PATIENT
  Age: 50 Year
  Sex: Female

DRUGS (2)
  1. ISOPHANE INSULIN [Suspect]
     Active Substance: INSULIN NOS
     Indication: DIABETES MELLITUS
     Dosage: 8 UNITS THREE TIMES A DAY
  2. HUMALOG [Concomitant]
     Active Substance: INSULIN LISPRO
     Indication: DIABETES MELLITUS

REACTIONS (7)
  - Blood potassium increased [Recovered/Resolved]
  - Blood calcium increased [Recovered/Resolved]
  - Nephropathy [Not Recovered/Not Resolved]
  - Hypoglycaemia [Recovered/Resolved]
  - Renal failure [Not Recovered/Not Resolved]
  - Retinopathy [Unknown]
  - Retinal haemorrhage [Unknown]
